FAERS Safety Report 7424684-9 (Version None)
Quarter: 2011Q2

REPORT INFORMATION
  Report Type: 
  Country: None (occurrence: None)
  Receive Date: 20110419
  Receipt Date: 20110411
  Transmission Date: 20111010
  Serious: Yes (Other)
  Sender: FDA-Public Use
  Company Number: US-MYLANLABS-2011S1005376

PATIENT
  Age: 30 Year
  Sex: Female

DRUGS (3)
  1. CLARAVIS [Suspect]
     Dates: start: 20101118
  2. AMNESTEEM [Suspect]
     Dates: start: 20101111, end: 20110310
  3. YAZ /01502501/ [Concomitant]

REACTIONS (2)
  - DRUG EXPOSURE DURING PREGNANCY [None]
  - ABORTION INDUCED [None]
